FAERS Safety Report 17736975 (Version 1)
Quarter: 2020Q2

REPORT INFORMATION
  Report Type: Spontaneous
  Country: US (occurrence: US)
  Receive Date: 20200502
  Receipt Date: 20200502
  Transmission Date: 20200714
  Serious: No
  Sender: FDA-Public Use
  Company Number: NVSC2020US118649

PATIENT
  Sex: Female

DRUGS (1)
  1. TYKERB [Suspect]
     Active Substance: LAPATINIB DITOSYLATE
     Indication: BREAST CANCER FEMALE
     Dosage: 250 MG, QD (TAKE 5 TABLETS BY MOUTH DAILY ON AN EMPTY STOMACH)
     Route: 048

REACTIONS (2)
  - Alopecia [Recovered/Resolved]
  - Diarrhoea [Recovered/Resolved]
